FAERS Safety Report 16671317 (Version 2)
Quarter: 2019Q3

REPORT INFORMATION
  Report Type: Spontaneous
  Country: NL (occurrence: NL)
  Receive Date: 20190806
  Receipt Date: 20190807
  Transmission Date: 20191004
  Serious: Yes (Other)
  Sender: FDA-Public Use
  Company Number: NL-SUN PHARMACEUTICAL INDUSTRIES LTD-2019RR-216436

PATIENT
  Age: 60 Year
  Sex: Female
  Weight: 63 kg

DRUGS (4)
  1. SUPPLEMENTEN VAN KRUIDVAT EN ETOS, VIT B12.CYANOCOBALAMINE [Concomitant]
     Active Substance: CYANOCOBALAMIN
     Indication: PRODUCT USED FOR UNKNOWN INDICATION
     Dosage: ()
     Route: 065
  2. VENLAFAXINE [Suspect]
     Active Substance: VENLAFAXINE HYDROCHLORIDE
     Indication: PRODUCT USED FOR UNKNOWN INDICATION
     Dosage: VENLAFAXINE 225 MG
     Route: 065
  3. VENLAFAXINE [Suspect]
     Active Substance: VENLAFAXINE HYDROCHLORIDE
     Dosage: VENLAFAXINE 150MG
     Route: 065
  4. TRAZODON TABLET, 50 MG (MILLIGRAM) [Suspect]
     Active Substance: TRAZODONE HYDROCHLORIDE
     Indication: BURNOUT SYNDROME
     Dosage: 1 X PER DAG, IN COMBINATIE MET VENLAFAXINE
     Route: 048
     Dates: start: 20181019, end: 20190623

REACTIONS (9)
  - Dry mouth [Not Recovered/Not Resolved]
  - Dental caries [Not Recovered/Not Resolved]
  - Dry skin [Not Recovered/Not Resolved]
  - Blood folate increased [Unknown]
  - Serotonin syndrome [Unknown]
  - Depression [Unknown]
  - Neuropathy peripheral [Not Recovered/Not Resolved]
  - Vitamin B6 increased [Unknown]
  - Alopecia [Not Recovered/Not Resolved]

NARRATIVE: CASE EVENT DATE: 20190311
